FAERS Safety Report 16976017 (Version 1)
Quarter: 2019Q4

REPORT INFORMATION
  Report Type: Spontaneous
  Country: GB (occurrence: GB)
  Receive Date: 20191030
  Receipt Date: 20191030
  Transmission Date: 20200122
  Serious: Yes (Other)
  Sender: FDA-Public Use
  Company Number: GB-009507513-1910GBR016314

PATIENT
  Age: 25 Year
  Sex: Male
  Weight: 82 kg

DRUGS (1)
  1. PROPECIA [Suspect]
     Active Substance: FINASTERIDE
     Indication: ALOPECIA
     Dosage: 0.5 TO 1MG
     Route: 048
     Dates: start: 20141101, end: 20180610

REACTIONS (4)
  - Erectile dysfunction [Not Recovered/Not Resolved]
  - Libido decreased [Not Recovered/Not Resolved]
  - Semen volume decreased [Not Recovered/Not Resolved]
  - Semen viscosity decreased [Not Recovered/Not Resolved]

NARRATIVE: CASE EVENT DATE: 20161201
